FAERS Safety Report 5173181-2 (Version None)
Quarter: 2006Q4

REPORT INFORMATION
  Report Type: 
  Country: None (occurrence: None)
  Receive Date: 20061214
  Receipt Date: 20060530
  Transmission Date: 20070319
  Serious: Yes (Death, Hospitalization, Other)
  Sender: FDA-Public Use
  Company Number: US-BAYER-200613659BWH

PATIENT
  Age: 68 Year
  Sex: Male
  Weight: 93 kg

DRUGS (12)
  1. NEXAVAR [Suspect]
     Indication: RENAL CELL CARCINOMA STAGE UNSPECIFIED
     Dosage: TOTAL DAILY DOSE: 800 MG  UNIT DOSE: 200 MG
     Route: 048
     Dates: start: 20060223, end: 20060518
  2. PERIFOSINE [Concomitant]
  3. ARANESP [Concomitant]
  4. LUNESTA [Concomitant]
  5. LOPRESSOR [Concomitant]
  6. COMPAZINE [Concomitant]
  7. HYTRIN [Concomitant]
  8. ALTACE [Concomitant]
  9. MORPHINE [Concomitant]
  10. NORVASC [Concomitant]
  11. ASPIRIN [Concomitant]
  12. COMBIVENT [Concomitant]

REACTIONS (10)
  - BLOOD ERYTHROPOIETIN INCREASED [None]
  - CARDIOMYOPATHY [None]
  - CEREBROVASCULAR ACCIDENT [None]
  - CONDITION AGGRAVATED [None]
  - DYSPNOEA [None]
  - EJECTION FRACTION DECREASED [None]
  - EMBOLIC STROKE [None]
  - METASTASES TO LUNG [None]
  - METASTASES TO PLEURA [None]
  - RENAL CELL CARCINOMA STAGE UNSPECIFIED [None]
